FAERS Safety Report 7086429-4 (Version None)
Quarter: 2010Q4

REPORT INFORMATION
  Report Type: 
  Country: None (occurrence: None)
  Receive Date: 20101105
  Receipt Date: 20101028
  Transmission Date: 20110411
  Serious: Yes (Other)
  Sender: FDA-Public Use
  Company Number: GB-JNJFOC-20090801714

PATIENT
  Age: 6 Year
  Sex: Male

DRUGS (3)
  1. IBUPROFEN [Suspect]
     Indication: ANTIPYRESIS
  2. ANTIBIOTICS NOS [Concomitant]
     Route: 065
  3. PARACETAMOL [Concomitant]
     Route: 065

REACTIONS (8)
  - BLOOD CREATININE INCREASED [None]
  - COAGULOPATHY [None]
  - DEHYDRATION [None]
  - GLOMERULONEPHRITIS [None]
  - HAEMORRHAGE [None]
  - PLEURAL EFFUSION [None]
  - RENAL FAILURE [None]
  - RENAL TUBULAR NECROSIS [None]
